FAERS Safety Report 5522030-9 (Version None)
Quarter: 2007Q4

REPORT INFORMATION
  Report Type: 
  Country: None (occurrence: None)
  Receive Date: 20071115
  Receipt Date: 20071106
  Transmission Date: 20080405
  Serious: Yes (Other)
  Sender: FDA-Public Use
  Company Number: 2007-04983

PATIENT
  Age: 23 Month
  Sex: Female
  Weight: 14.3 kg

DRUGS (8)
  1. MORPHINE SULFATE [Suspect]
     Indication: AMNESIA
     Dosage: 0.28 MG/H (20 MCG/KG/H), INTRAVENOUS
     Route: 042
  2. MORPHINE SULFATE [Suspect]
     Indication: ANALGESIA
     Dosage: 0.28 MG/H (20 MCG/KG/H), INTRAVENOUS
     Route: 042
  3. VECURONIUM BROMIDE [Suspect]
     Indication: AMNESIA
     Dosage: 2 MG (140 MCG/KG), INTRAVENOUS
     Route: 042
  4. VECURONIUM BROMIDE [Suspect]
     Indication: ANALGESIA
     Dosage: 2 MG (140 MCG/KG), INTRAVENOUS
     Route: 042
  5. THIOPENTAL SODIUM [Suspect]
     Indication: INDUCTION OF ANAESTHESIA
     Dosage: 50 MG (3.5 MG/KG), INTRAVEOUS
     Route: 042
  6. SUCCINYLCHOLINE CHLORIDE [Suspect]
     Indication: INDUCTION OF ANAESTHESIA
     Dosage: 30 MG (2MG/KG), INTRAVENOUS
     Route: 042
  7. MIDAZOLAM HCL [Suspect]
     Indication: AMNESIA
     Dosage: 0.5 MG/H (35MCG/KG/H), INTRAVENOUS
     Route: 042
  8. MIDAZOLAM HCL [Suspect]
     Indication: ANALGESIA
     Dosage: 0.5 MG/H (35MCG/KG/H), INTRAVENOUS
     Route: 042

REACTIONS (4)
  - BRADYCARDIA [None]
  - CONDUCTION DISORDER [None]
  - ELECTROCARDIOGRAM QRS COMPLEX PROLONGED [None]
  - FEMORAL PULSE DECREASED [None]
